FAERS Safety Report 8620366-6 (Version None)
Quarter: 2012Q3

REPORT INFORMATION
  Report Type: 
  Country: None (occurrence: None)
  Receive Date: 20120824
  Receipt Date: 20120817
  Transmission Date: 20120928
  Serious: Yes (Hospitalization)
  Sender: FDA-Public Use
  Company Number: US-GLAXOSMITHKLINE-A0990078A

PATIENT
  Age: 55 Year
  Sex: Female

DRUGS (1)
  1. TYKERB [Suspect]
     Indication: BREAST CANCER
     Dosage: 1TAB PER DAY
     Route: 048
     Dates: start: 20120721

REACTIONS (3)
  - DIARRHOEA [None]
  - WEIGHT DECREASED [None]
  - VOMITING [None]
